FAERS Safety Report 19194238 (Version 1)
Quarter: 2021Q2

REPORT INFORMATION
  Report Type: Spontaneous
  Country: US (occurrence: US)
  Receive Date: 20210429
  Receipt Date: 20210429
  Transmission Date: 20210717
  Serious: Yes (Hospitalization)
  Sender: FDA-Public Use
  Company Number: None

PATIENT
  Age: 65 Year
  Sex: Male
  Weight: 123 kg

DRUGS (1)
  1. LISINOPRIL. [Suspect]
     Active Substance: LISINOPRIL
     Indication: HYPERTENSION
     Route: 048
     Dates: start: 20100420, end: 20210214

REACTIONS (4)
  - Angioedema [None]
  - Speech disorder [None]
  - Secretion discharge [None]
  - Swollen tongue [None]

NARRATIVE: CASE EVENT DATE: 20210214
